FAERS Safety Report 22356256 (Version 1)
Quarter: 2023Q2

REPORT INFORMATION
  Report Type: Spontaneous
  Country: JP (occurrence: JP)
  Receive Date: 20230523
  Receipt Date: 20230523
  Transmission Date: 20230722
  Serious: Yes (Hospitalization)
  Sender: FDA-Public Use
  Company Number: JP-ferring-EVA202300572FERRINGPH

PATIENT

DRUGS (5)
  1. DESMOPRESSIN [Suspect]
     Active Substance: DESMOPRESSIN
     Indication: Diabetes insipidus
     Dosage: UNK
     Route: 065
     Dates: end: 2023
  2. DESMOPRESSIN ACETATE [Suspect]
     Active Substance: DESMOPRESSIN ACETATE
     Indication: Diabetes insipidus
     Dosage: 120 UG SUBLINGUALLY TWO HOURS AFTER MEAL WITH NO WATER
     Route: 060
     Dates: start: 20230512
  3. DESMOPRESSIN ACETATE [Suspect]
     Active Substance: DESMOPRESSIN ACETATE
     Dosage: 180 UG, DAILY (120 UG IN THE MORNING AND 60 UG IN THE EVENING)
     Route: 060
     Dates: start: 2023
  4. DESMOPRESSIN ACETATE [Suspect]
     Active Substance: DESMOPRESSIN ACETATE
     Dosage: 120 UG, 1 TIME DAILY
     Route: 060
     Dates: start: 2023
  5. DESMOPRESSIN ACETATE [Suspect]
     Active Substance: DESMOPRESSIN ACETATE
     Dosage: 60 UG, 120 UG OR 240 UG
     Route: 060

REACTIONS (5)
  - Depressed level of consciousness [Unknown]
  - Pneumonia aspiration [Unknown]
  - Blood sodium abnormal [Unknown]
  - Product substitution issue [Unknown]
  - Drug ineffective [Unknown]

NARRATIVE: CASE EVENT DATE: 20230101
